FAERS Safety Report 8512270-9 (Version None)
Quarter: 2012Q3

REPORT INFORMATION
  Report Type: 
  Country: None (occurrence: None)
  Receive Date: 20120716
  Receipt Date: 20120419
  Transmission Date: 20120928
  Serious: Yes (Life-Threatening, Hospitalization, Other)
  Sender: FDA-Public Use
  Company Number: HK-ASTRAZENECA-2012SE47200

PATIENT
  Age: 22 Year
  Sex: Male

DRUGS (5)
  1. QUETIAPINE [Suspect]
     Route: 048
  2. HALOPERIDOL [Suspect]
     Indication: HALLUCINATION
     Route: 030
  3. QUETIAPINE [Suspect]
     Route: 048
  4. HALOPERIDOL [Suspect]
     Indication: MOOD SWINGS
     Route: 030
  5. VALPROATE SODIUM [Suspect]

REACTIONS (2)
  - NEUROLEPTIC MALIGNANT SYNDROME [None]
  - OVERDOSE [None]
